FAERS Safety Report 12758966 (Version 1)
Quarter: 2016Q3

REPORT INFORMATION
  Report Type: Spontaneous
  Country: US (occurrence: US)
  Receive Date: 20160916
  Receipt Date: 20160916
  Transmission Date: 20161109
  Serious: No
  Sender: FDA-Public Use
  Company Number: None

PATIENT
  Age: 59 Year
  Sex: Female

DRUGS (1)
  1. BOTOX [Suspect]
     Active Substance: ONABOTULINUMTOXINA
     Indication: TORTICOLLIS
     Dosage: 200 UNITS EVERY 3 MONTHS IM
     Route: 030
     Dates: start: 20160428, end: 20160725

REACTIONS (3)
  - Muscular weakness [None]
  - Arthropathy [None]
  - Post procedural complication [None]

NARRATIVE: CASE EVENT DATE: 20160430
